FAERS Safety Report 7902888-6 (Version None)
Quarter: 2011Q4

REPORT INFORMATION
  Report Type: 
  Country: None (occurrence: None)
  Receive Date: 20111107
  Receipt Date: 20111028
  Transmission Date: 20120403
  Serious: Yes (Other)
  Sender: FDA-Public Use
  Company Number: 2011SP031231

PATIENT
  Age: 39 Year
  Sex: Male

DRUGS (6)
  1. MIRTAZAPINE [Suspect]
     Indication: DEPRESSION
     Dosage: 15 MG;QD;PO 7.5 MG;QD;PO
     Route: 048
     Dates: start: 20101110, end: 20110324
  2. MIRTAZAPINE [Suspect]
     Indication: DEPRESSION
     Dosage: 15 MG;QD;PO 7.5 MG;QD;PO
     Route: 048
     Dates: start: 20110325, end: 20110421
  3. ALPRAZOLAM [Concomitant]
  4. SERTRALINE HYDROCHLORIDE [Concomitant]
  5. MEPENZOLATE BROMIDE [Concomitant]
  6. ETIZOLAM [Concomitant]

REACTIONS (4)
  - WEIGHT INCREASED [None]
  - ASPARTATE AMINOTRANSFERASE INCREASED [None]
  - BLOOD CREATINE PHOSPHOKINASE INCREASED [None]
  - BLOOD LACTATE DEHYDROGENASE INCREASED [None]
